FAERS Safety Report 4484279-6 (Version None)
Quarter: 2004Q3

REPORT INFORMATION
  Report Type: 
  Country: None (occurrence: None)
  Receive Date: 20040921
  Receipt Date: 20040203
  Transmission Date: 20050211
  Serious: Yes (Death)
  Sender: FDA-Public Use
  Company Number: 163-20785-04020037

PATIENT
  Age: 63 Year
  Sex: Female

DRUGS (7)
  1. THALOMID [Suspect]
     Indication: MULTIPLE MYELOMA
     Dosage: SEE IMAGE
     Route: 048
     Dates: start: 20010416
  2. THALOMID [Suspect]
     Indication: MULTIPLE MYELOMA
     Dosage: SEE IMAGE
     Route: 048
     Dates: start: 20020831
  3. DECADRON [Concomitant]
  4. CISPLATIN [Concomitant]
  5. DOXORUBICIN HCL [Concomitant]
  6. CYCLOPHOSPHAMIDE [Concomitant]
  7. ETOPOSIDE [Concomitant]

REACTIONS (2)
  - DEATH [None]
  - DISEASE PROGRESSION [None]
